FAERS Safety Report 14797846 (Version 2)
Quarter: 2018Q2

REPORT INFORMATION
  Report Type: Spontaneous
  Country: IT (occurrence: IT)
  Receive Date: 20180424
  Receipt Date: 20180607
  Transmission Date: 20180711
  Serious: Yes (Other)
  Sender: FDA-Public Use
  Company Number: IT-ACCORD-065937

PATIENT
  Age: 72 Year
  Sex: Female

DRUGS (4)
  1. RITUXIMAB. [Suspect]
     Active Substance: RITUXIMAB
     Indication: CHRONIC LYMPHOCYTIC LEUKAEMIA
     Dosage: IN JUN/2017, SHE ADMINISTERED LAST CYCLE OF RITUXIMAB
     Route: 065
     Dates: start: 2016
  2. FLUDARABINE [Concomitant]
     Active Substance: FLUDARABINE PHOSPHATE
     Indication: CHRONIC LYMPHOCYTIC LEUKAEMIA
  3. CYCLOPHOSPHAMIDE/CYCLOPHOSPHAMIDE MONOHYDRATE [Concomitant]
     Indication: CHRONIC LYMPHOCYTIC LEUKAEMIA
  4. BENDAMUSTINE/BENDAMUSTINE HYDROCHLORIDE [Suspect]
     Active Substance: BENDAMUSTINE HYDROCHLORIDE
     Indication: CHRONIC LYMPHOCYTIC LEUKAEMIA
     Dosage: IN JUN/2017, SHE ADMINISTERED LAST CYCLE OF RITUXIMAB AND BENDAMUSTINE AT 70 MG / M2
     Route: 042
     Dates: start: 2016

REACTIONS (3)
  - Progressive multifocal leukoencephalopathy [Unknown]
  - Prescribed underdose [Unknown]
  - Autoimmune haemolytic anaemia [Recovered/Resolved]

NARRATIVE: CASE EVENT DATE: 201706
